FAERS Safety Report 8204431-3 (Version None)
Quarter: 2012Q1

REPORT INFORMATION
  Report Type: 
  Country: None (occurrence: None)
  Receive Date: 20120313
  Receipt Date: 20120307
  Transmission Date: 20120608
  Serious: No
  Sender: FDA-Public Use
  Company Number: US-BAYER-2012-023873

PATIENT
  Sex: Female

DRUGS (1)
  1. SAFYRAL [Suspect]
     Dosage: UNK
     Route: 048
     Dates: end: 20120201

REACTIONS (1)
  - MENSTRUATION DELAYED [None]
